FAERS Safety Report 9229220 (Version 1)
Quarter: 2013Q2

REPORT INFORMATION
  Report Type: Spontaneous
  Country: US (occurrence: US)
  Receive Date: 20130412
  Receipt Date: 20130412
  Transmission Date: 20140414
  Serious: No
  Sender: FDA-Public Use
  Company Number: US-ASTELLAS-2012US011194

PATIENT
  Sex: Female
  Weight: 58 kg

DRUGS (15)
  1. PROGRAF [Suspect]
     Indication: RENAL TRANSPLANT
     Dosage: 3 MG IN MORNING, 4 MG IN EVENING, UID/QD
     Route: 048
  2. LOESTRIN [Concomitant]
     Indication: HORMONE THERAPY
     Dosage: 1 DF, UID/QD
     Route: 048
  3. BIOTIN [Concomitant]
     Indication: SUPPLEMENTATION THERAPY
     Dosage: 1000 MG, UID/QD
     Route: 048
  4. PRENATAL VITAMINS                  /02014401/ [Concomitant]
     Indication: SUPPLEMENTATION THERAPY
     Dosage: 1 DF, UID/QD
     Route: 048
  5. NEXIUM                             /01479302/ [Concomitant]
     Indication: GASTROOESOPHAGEAL REFLUX DISEASE
     Dosage: 20 MG, UID/QD
     Route: 048
  6. FERROUS SULPHATE                   /00023503/ [Concomitant]
     Indication: SUPPLEMENTATION THERAPY
     Dosage: 325 MG, BID
     Route: 048
  7. BABY ASPIRIN [Concomitant]
     Indication: COAGULOPATHY
     Dosage: 81 MG, UID/QD
     Route: 048
  8. KLOR-CON [Concomitant]
     Indication: PRODUCT USED FOR UNKNOWN INDICATION
     Dosage: 20 MG, UID/QD
     Route: 048
  9. LASIX                              /00032601/ [Concomitant]
     Indication: PRODUCT USED FOR UNKNOWN INDICATION
     Dosage: 40 MG, UID/QD
     Route: 048
  10. GABAPENTIN [Concomitant]
     Indication: RESTLESS LEGS SYNDROME
     Dosage: 300 MG, UID/QD
     Route: 048
  11. LOPRESSOR [Concomitant]
     Indication: BLOOD PRESSURE
     Dosage: 25 MG, BID
     Route: 048
  12. ONDANSETRON [Concomitant]
     Indication: MUSCLE SPASMS
     Dosage: 4 MG, Q8 HOURS
     Route: 048
  13. BETHANECHOL [Concomitant]
     Indication: DYSURIA
     Dosage: 10 MG, TID
     Route: 048
  14. PREDNISONE [Concomitant]
     Indication: PRODUCT USED FOR UNKNOWN INDICATION
     Dosage: 5 MG, UID/QD
     Route: 048
  15. CELLCEPT                           /01275102/ [Concomitant]
     Indication: KIDNEY TRANSPLANT REJECTION
     Dosage: 3 MG IN MORNING, 4 MG IN EVENING, UID/QD
     Route: 048

REACTIONS (1)
  - Cough [Unknown]
